FAERS Safety Report 15632760 (Version 1)
Quarter: 2018Q4

REPORT INFORMATION
  Report Type: Spontaneous
  Country: FR (occurrence: FR)
  Receive Date: 20181119
  Receipt Date: 20181119
  Transmission Date: 20190205
  Serious: Yes (Other)
  Sender: FDA-Public Use
  Company Number: FR-PFIZER INC-2018470986

PATIENT
  Age: 79 Year
  Sex: Female

DRUGS (2)
  1. LEVOFLOXACIN. [Suspect]
     Active Substance: LEVOFLOXACIN
     Indication: MENINGITIS
     Dosage: UNSPECIFIED
     Route: 048
     Dates: start: 20180919, end: 20181009
  2. DALACINE [Suspect]
     Active Substance: CLINDAMYCIN
     Indication: MENINGITIS
     Dosage: UNSPECIFIED
     Route: 048
     Dates: start: 20180919, end: 20181009

REACTIONS (3)
  - Eosinophilia [Not Recovered/Not Resolved]
  - Renal failure [Recovered/Resolved]
  - Rash maculo-papular [Recovered/Resolved]

NARRATIVE: CASE EVENT DATE: 201810
